FAERS Safety Report 5265673-2 (Version None)
Quarter: 2007Q1

REPORT INFORMATION
  Report Type: 
  Country: None (occurrence: None)
  Receive Date: 20061213
  Receipt Date: 20020806
  Transmission Date: 20070707
  Serious: Yes (Death)
  Sender: FDA-Public Use
  Company Number: 2002UW08541

PATIENT
  Age: 80 Year
  Sex: Female

DRUGS (1)
  1. NOLVADEX [Suspect]
     Indication: BREAST CANCER
     Dosage: 10 MG BID PO
     Route: 048
     Dates: start: 19910301, end: 19980116

REACTIONS (2)
  - METASTASES TO LUNG [None]
  - SARCOMA UTERUS [None]
